FAERS Safety Report 5264982-0 (Version None)
Quarter: 2007Q1

REPORT INFORMATION
  Report Type: 
  Country: None (occurrence: None)
  Receive Date: 20070314
  Receipt Date: 20070302
  Transmission Date: 20070707
  Serious: Yes (Life-Threatening)
  Sender: FDA-Public Use
  Company Number: JP-ROCHE-483899

PATIENT
  Age: 15 Year
  Sex: Male
  Weight: 58 kg

DRUGS (6)
  1. TAMIFLU [Suspect]
     Route: 048
     Dates: start: 20070217, end: 20070217
  2. PL [Concomitant]
     Route: 048
     Dates: start: 20070217
  3. KETEK [Concomitant]
     Route: 048
     Dates: start: 20070217
  4. MECLOCELIN [Concomitant]
     Dosage: DOSE FORM: ORAL FORMULATION (NOT OTHERWISE SPECIFIED)
     Route: 048
     Dates: start: 20070217
  5. ASVERIN [Concomitant]
     Dosage: DOSE FORM: ORAL FORMULATION (NOT OTHERWISE SPECIFIED)
     Route: 048
     Dates: start: 20070217
  6. SELBEX [Concomitant]
     Dosage: ORAL FORMULATION (NOT OTHERWISE SPECIFIED)
     Route: 048
     Dates: start: 20070217

REACTIONS (2)
  - ABNORMAL BEHAVIOUR [None]
  - SUICIDE ATTEMPT [None]
